FAERS Safety Report 8615414-3 (Version None)
Quarter: 2012Q3

REPORT INFORMATION
  Report Type: 
  Country: None (occurrence: None)
  Receive Date: 20120823
  Receipt Date: 20120820
  Transmission Date: 20120928
  Serious: Yes (Other)
  Sender: FDA-Public Use
  Company Number: CA-AMGEN-CANSP2012045586

PATIENT
  Age: 50 Year
  Sex: Female
  Weight: 83.9 kg

DRUGS (6)
  1. KRILL OMEGA RED OIL [Concomitant]
     Indication: ROUTINE HEALTH MAINTENANCE
     Dosage: 1000 MG, QD
     Dates: start: 20120807
  2. ENBREL [Suspect]
     Indication: PSORIASIS
     Dosage: 50 MG, 2 TIMES/WK
     Route: 058
     Dates: start: 20120706, end: 20120717
  3. VITAMIN B COMPLEX CAP [Concomitant]
     Indication: ROUTINE HEALTH MAINTENANCE
     Dosage: 100 MG, QD
     Route: 048
  4. TYLENOL (CAPLET) [Concomitant]
     Indication: PAIN
     Dosage: UNK UNK, PRN
     Route: 048
  5. CALCIUM + VITAMIN D [Concomitant]
     Indication: ROUTINE HEALTH MAINTENANCE
     Dosage: 1500 MG, QD
     Route: 048
     Dates: start: 20010101
  6. MELATONIN [Concomitant]
     Indication: SLEEP DISORDER
     Dosage: 2000 MG, QD
     Route: 048

REACTIONS (16)
  - HYPERSENSITIVITY [None]
  - INJECTION SITE URTICARIA [None]
  - INJECTION SITE ERYTHEMA [None]
  - INJECTION SITE INDURATION [None]
  - INJECTION SITE RASH [None]
  - SWOLLEN TONGUE [None]
  - INJECTION SITE SWELLING [None]
  - INJECTION SITE PRURITUS [None]
  - DYSPNOEA [None]
  - INJECTION SITE REACTION [None]
  - DYSPHAGIA [None]
  - SWELLING FACE [None]
  - INJECTION SITE MACULE [None]
  - TONGUE DISORDER [None]
  - RASH [None]
  - INJECTION SITE WARMTH [None]
